FAERS Safety Report 10745921 (Version 2)
Quarter: 2015Q2

REPORT INFORMATION
  Report Type: Spontaneous
  Country: US (occurrence: US)
  Receive Date: 20150128
  Receipt Date: 20150519
  Transmission Date: 20150821
  Serious: No
  Sender: FDA-Public Use
  Company Number: US-GLAXOSMITHKLINE-US2015GSK010290

PATIENT
  Age: 37 Year
  Sex: Female
  Weight: 45.35 kg

DRUGS (4)
  1. BENLYSTA [Suspect]
     Active Substance: BELIMUMAB
     Dosage: 120 MG X 2
     Dates: start: 201412, end: 20150212
  2. BENLYSTA [Suspect]
     Active Substance: BELIMUMAB
     Dosage: 120 MG X 1
     Dates: start: 201412, end: 20150212
  3. BENLYSTA [Suspect]
     Active Substance: BELIMUMAB
     Indication: SYSTEMIC LUPUS ERYTHEMATOSUS
     Dosage: UNK, 0,2,4 WEEKS
     Route: 042
     Dates: start: 201412
  4. BENLYSTA [Suspect]
     Active Substance: BELIMUMAB
     Dosage: 120 MG X 1
     Dates: start: 201412, end: 20150212

REACTIONS (4)
  - Nausea [Not Recovered/Not Resolved]
  - Diarrhoea [Not Recovered/Not Resolved]
  - Weight decreased [Not Recovered/Not Resolved]
  - Vomiting [Not Recovered/Not Resolved]

NARRATIVE: CASE EVENT DATE: 201412
